FAERS Safety Report 4641708-2 (Version None)
Quarter: 2005Q2

REPORT INFORMATION
  Report Type: 
  Country: None (occurrence: None)
  Receive Date: 20050421
  Receipt Date: 20050406
  Transmission Date: 20051028
  Serious: No
  Sender: FDA-Public Use
  Company Number: ABILB-05-0215

PATIENT
  Age: 56 Year
  Sex: Female

DRUGS (7)
  1. ABRAXANE [Suspect]
     Indication: BREAST CANCER
     Dosage: 2 DOSES 490 MG (260 MG/M2, 3  EVERY WEEKS), INTRAVENOUS DRIP
     Route: 041
     Dates: start: 20050223, end: 20050316
  2. ABRAXANE [Suspect]
     Indication: METASTASES TO LUNG
     Dosage: 2 DOSES 490 MG (260 MG/M2, 3  EVERY WEEKS), INTRAVENOUS DRIP
     Route: 041
     Dates: start: 20050223, end: 20050316
  3. VICODIN [Concomitant]
  4. TENEX [Concomitant]
  5. ZOLOFT [Concomitant]
  6. KAOPECTATE (KAOPECTATE) [Concomitant]
  7. ADVIL [Concomitant]

REACTIONS (4)
  - ARTHRALGIA [None]
  - BONE PAIN [None]
  - INFLUENZA LIKE ILLNESS [None]
  - MYALGIA [None]
